FAERS Safety Report 18583843 (Version 3)
Quarter: 2020Q4

REPORT INFORMATION
  Report Type: Spontaneous
  Country: AR (occurrence: AR)
  Receive Date: 20201207
  Receipt Date: 20201220
  Transmission Date: 20210114
  Serious: Yes (Other)
  Sender: FDA-Public Use
  Company Number: AR-AMGEN-ARGSP2020197525

PATIENT
  Age: 69 Year
  Sex: Male

DRUGS (3)
  1. ARTRAIT 10 [Concomitant]
     Indication: ARTHRITIS
     Dosage: UNK, WEEKLY
  2. ENBREL [Suspect]
     Active Substance: ETANERCEPT
     Indication: PSORIATIC ARTHROPATHY
     Dosage: 50 MG, WEEKLY
     Route: 065
     Dates: start: 20100513, end: 20201123
  3. FOLIC ACID. [Concomitant]
     Active Substance: FOLIC ACID
     Indication: ARTHRITIS
     Dosage: 5 MG, WEEKLY

REACTIONS (6)
  - Mobility decreased [Recovered/Resolved]
  - Pain in extremity [Recovered/Resolved]
  - Dysstasia [Recovered/Resolved]
  - Pain [Recovered/Resolved]
  - Arthralgia [Recovered/Resolved]
  - Sciatica [Recovered/Resolved]

NARRATIVE: CASE EVENT DATE: 202011
